FAERS Safety Report 26188071 (Version 1)
Quarter: 2025Q4

REPORT INFORMATION
  Report Type: Spontaneous
  Country: GB (occurrence: GB)
  Receive Date: 20251222
  Receipt Date: 20251222
  Transmission Date: 20260117
  Serious: Yes (Congenital Anomaly, Other)
  Sender: B. BRAUN MEDICAL INC.
  Company Number: None

PATIENT

DRUGS (17)
  1. ACETAMINOPHEN [Suspect]
     Active Substance: ACETAMINOPHEN
     Dosage: IN 1ST TRIMESTER ONLY
  2. FOLIC ACID [Suspect]
     Active Substance: FOLIC ACID
     Indication: Vitamin supplementation
  3. BECLOMETHASONE DIPROPIONATE [Suspect]
     Active Substance: BECLOMETHASONE DIPROPIONATE
     Indication: Adverse drug reaction
     Dates: start: 20240528
  4. DULOXETINE [Suspect]
     Active Substance: DULOXETINE
     Indication: Depression
     Dates: start: 20230223
  5. MIRTAZAPINE [Suspect]
     Active Substance: MIRTAZAPINE
     Indication: Depression
     Dates: start: 20220615
  6. QUETIAPINE [Suspect]
     Active Substance: QUETIAPINE
     Indication: Anxiety
     Dates: start: 20150120
  7. CHOLECALCIFEROL [Suspect]
     Active Substance: CHOLECALCIFEROL
     Indication: Pregnancy
     Dates: start: 20250320
  8. ENOXAPARIN SODIUM [Suspect]
     Active Substance: ENOXAPARIN SODIUM
     Indication: Pregnancy with advanced maternal age
     Dosage: IN 2ND AND 3RD TRIMESTERS
     Dates: start: 20250514
  9. LACTULOSE [Suspect]
     Active Substance: LACTULOSE
     Indication: Constipation
     Dates: start: 20250409
  10. POLYETHYLENE GLYCOLS [Suspect]
     Active Substance: POLYETHYLENE GLYCOLS
     Indication: Constipation
     Dosage: 1-2 SACHETS DAILY?IN 2ND AND 3RD TRIMESTERS
  11. DISODIUM HYDROGEN CITRATE\SODIUM LAURYL SULFOACETATE\SORBIC ACID [Suspect]
     Active Substance: DISODIUM HYDROGEN CITRATE\SODIUM LAURYL SULFOACETATE\SORBIC ACID
     Indication: Constipation
     Dosage: 1 AS NEEDED RECTALLY?3RD TRIMESTER ONLY
  12. OMEPRAZOLE [Suspect]
     Active Substance: OMEPRAZOLE
     Dates: start: 20240731
  13. SENNA [Suspect]
     Active Substance: SENNOSIDES
     Indication: Constipation
     Dosage: AT NIGHT WHEN NEEDED IN 1ST AND 3RD TRIMESTER
     Dates: start: 20240731
  14. ALBUTEROL [Suspect]
     Active Substance: ALBUTEROL
     Indication: Adverse drug reaction
     Dosage: 2 PUFFS PRN
  15. AMOXICILLIN TRIHYDRATE [Suspect]
     Active Substance: AMOXICILLIN
     Indication: Upper respiratory tract infection
     Dosage: 1 THREE TIMES A DAY FOR 1 WEEK
     Dates: start: 20250925, end: 20251002
  16. CLOTRIMAZOLE [Suspect]
     Active Substance: CLOTRIMAZOLE
     Indication: Vulvovaginal candidiasis
     Dosage: FOR 6 NIGHTS IN 2ND AND 3RD TRIMESTERS
     Dates: start: 20250804, end: 20250811
  17. NITROFURANTOIN [Suspect]
     Active Substance: NITROFURANTOIN
     Dosage: ONE COURSE IN 1ST TRIMESTER ONLY;

REACTIONS (2)
  - Cleft palate [Not Recovered/Not Resolved]
  - Foetal exposure during pregnancy [Unknown]

NARRATIVE: CASE EVENT DATE: 20251101
